FAERS Safety Report 7494011-X (Version None)
Quarter: 2011Q2

REPORT INFORMATION
  Report Type: 
  Country: None (occurrence: None)
  Receive Date: 20110520
  Receipt Date: 20110518
  Transmission Date: 20111010
  Serious: Yes (Other)
  Sender: FDA-Public Use
  Company Number: US-PFIZER INC-2011108201

PATIENT
  Sex: Female

DRUGS (1)
  1. LYRICA [Suspect]
     Dosage: 300 MG, ONCE
     Route: 048
     Dates: start: 20110507, end: 20110507

REACTIONS (5)
  - ACCIDENTAL EXPOSURE [None]
  - DIPLOPIA [None]
  - FATIGUE [None]
  - BALANCE DISORDER [None]
  - DYSGRAPHIA [None]
